FAERS Safety Report 9685839 (Version 1)
Quarter: 2013Q4

REPORT INFORMATION
  Report Type: Spontaneous
  Country: US (occurrence: US)
  Receive Date: 20131113
  Receipt Date: 20131113
  Transmission Date: 20140711
  Serious: Yes (Other)
  Sender: FDA-Public Use
  Company Number: US-MALLINCKRODT-T201304783

PATIENT
  Sex: Male
  Weight: 55.78 kg

DRUGS (2)
  1. METHYLPHENIDATE HYDROCHLORIDE EXTENDED RELEASE TABLETS [Suspect]
     Indication: ATTENTION DEFICIT/HYPERACTIVITY DISORDER
     Dosage: 36 MG, 2 TABS QD X 2 WKS
     Route: 048
     Dates: start: 2013
  2. METHYLPHENIDATE HYDROCHLORIDE EXTENDED RELEASE TABLETS [Suspect]
     Dosage: 36 MG, 1 TAB QD X 2WKS
     Route: 048
     Dates: start: 201308

REACTIONS (9)
  - Psychotic disorder [Recovered/Resolved]
  - Gait disturbance [Recovered/Resolved]
  - Aphonia [Recovered/Resolved]
  - Weight decreased [Recovered/Resolved]
  - Self injurious behaviour [Recovered/Resolved]
  - Muscle twitching [Recovered/Resolved]
  - Muscle contractions involuntary [Recovered/Resolved]
  - Erythema [Recovered/Resolved]
  - Anxiety [Recovered/Resolved]
